FAERS Safety Report 17972788 (Version 1)
Quarter: 2020Q3

REPORT INFORMATION
  Report Type: Spontaneous
  Country: US (occurrence: US)
  Receive Date: 20200701
  Receipt Date: 20200701
  Transmission Date: 20201103
  Serious: Yes (Hospitalization)
  Sender: FDA-Public Use
  Company Number: None

PATIENT
  Age: 69 Year
  Sex: Male

DRUGS (1)
  1. SUTENT [Suspect]
     Active Substance: SUNITINIB MALATE
     Dosage: OTHER
     Route: 048
     Dates: start: 202005

REACTIONS (2)
  - Epistaxis [None]
  - Blood count abnormal [None]

NARRATIVE: CASE EVENT DATE: 20200621
